FAERS Safety Report 4718040-1 (Version None)
Quarter: 2005Q3

REPORT INFORMATION
  Report Type: 
  Country: None (occurrence: None)
  Receive Date: 20050718
  Receipt Date: 20050404
  Transmission Date: 20060218
  Serious: No
  Sender: FDA-Public Use
  Company Number: 2005000670

PATIENT
  Sex: Male

DRUGS (10)
  1. TARCEVA [Suspect]
     Indication: NON-SMALL CELL LUNG CANCER
     Dosage: 150 MG (QD), ORAL
     Route: 048
     Dates: start: 20050301, end: 20050308
  2. TARCEVA [Suspect]
     Indication: NON-SMALL CELL LUNG CANCER
     Dosage: 150 MG (QD), ORAL
     Route: 048
     Dates: start: 20050315
  3. LORATADINE [Concomitant]
  4. CELEBREX [Concomitant]
  5. ALBUTEROL [Concomitant]
  6. EPHEDRINE INHALER (EPHEDRINE) [Concomitant]
  7. COMBIVENT [Concomitant]
  8. ASPIRIN [Concomitant]
  9. BRONCHIAL MIST [Concomitant]
  10. BIAXIN [Concomitant]

REACTIONS (4)
  - ECZEMA [None]
  - ERYTHEMA [None]
  - FACE OEDEMA [None]
  - RASH [None]
